FAERS Safety Report 25738990 (Version 1)
Quarter: 2025Q3

REPORT INFORMATION
  Report Type: Report from Study
  Country: US (occurrence: US)
  Receive Date: 20250829
  Receipt Date: 20250829
  Transmission Date: 20251020
  Serious: Yes (Other)
  Sender: ABBVIE
  Company Number: US-ABBVIE-6433889

PATIENT
  Age: 32 Year
  Sex: Female

DRUGS (1)
  1. SKYRIZI [Suspect]
     Active Substance: RISANKIZUMAB-RZAA
     Indication: Crohn^s disease
     Route: 058
     Dates: start: 20221129

REACTIONS (3)
  - Intestinal haemorrhage [Recovering/Resolving]
  - Urinary tract infection [Recovering/Resolving]
  - Intestinal ulcer [Recovering/Resolving]

NARRATIVE: CASE EVENT DATE: 20250701
